FAERS Safety Report 5778815-7 (Version None)
Quarter: 2008Q2

REPORT INFORMATION
  Report Type: 
  Country: None (occurrence: None)
  Receive Date: 20080619
  Receipt Date: 20080617
  Transmission Date: 20081010
  Serious: Yes (Other)
  Sender: FDA-Public Use
  Company Number: PHEH2008US05297

PATIENT
  Sex: Female

DRUGS (3)
  1. VIVELLE-DOT [Suspect]
     Indication: BLOOD OESTROGEN ABNORMAL
     Dosage: 0.025 MG DAILY, UNK
     Route: 062
  2. VIVELLE-DOT [Suspect]
     Dosage: 0.075 MG DAILY, UNK
     Route: 062
  3. VIVELLE-DOT [Suspect]
     Dosage: 0.1 MG, QD
     Route: 062

REACTIONS (5)
  - AMNESIA [None]
  - DRUG LEVEL DECREASED [None]
  - PHARMACEUTICAL PRODUCT COMPLAINT [None]
  - SPEECH DISORDER [None]
  - THERAPEUTIC RESPONSE UNEXPECTED [None]
